FAERS Safety Report 13964452 (Version 1)
Quarter: 2017Q3

REPORT INFORMATION
  Report Type: Spontaneous
  Country: US (occurrence: US)
  Receive Date: 20170913
  Receipt Date: 20170913
  Transmission Date: 20171128
  Serious: Yes (Other)
  Sender: FDA-Public Use
  Company Number: US-BAYER-2017-172390

PATIENT
  Age: 70 Year
  Sex: Female

DRUGS (3)
  1. TINACTIN [Suspect]
     Active Substance: TOLNAFTATE
     Indication: THERAPEUTIC SKIN CARE TOPICAL
     Dosage: UNK
     Route: 061
     Dates: start: 2014, end: 201709
  2. ALEVE [Suspect]
     Active Substance: NAPROXEN SODIUM
     Dosage: AS NEEDED
     Route: 048
  3. BAYER LOW DOSE [Concomitant]
     Active Substance: ASPIRIN
     Indication: DRUG INEFFECTIVE FOR UNAPPROVED INDICATION
     Dosage: ONCE DAILY
     Route: 048

REACTIONS (4)
  - Expired product administered [Unknown]
  - Abnormal faeces [Unknown]
  - Drug effect incomplete [None]
  - Drug dependence [Unknown]
